FAERS Safety Report 11724587 (Version 1)
Quarter: 2015Q4

REPORT INFORMATION
  Report Type: Spontaneous
  Country: US (occurrence: US)
  Receive Date: 20151111
  Receipt Date: 20151111
  Transmission Date: 20160304
  Serious: No
  Sender: FDA-Public Use
  Company Number: US-UCBSA-2014012929

PATIENT
  Sex: Female

DRUGS (2)
  1. VIMPAT [Suspect]
     Active Substance: LACOSAMIDE
     Dosage: 100 MG
  2. VIMPAT [Suspect]
     Active Substance: LACOSAMIDE
     Dosage: 50 MG LACOSAMIDE

REACTIONS (2)
  - Somnolence [Unknown]
  - Vision blurred [Unknown]
